FAERS Safety Report 7058294-2 (Version None)
Quarter: 2010Q4

REPORT INFORMATION
  Report Type: 
  Country: None (occurrence: None)
  Receive Date: 20101022
  Receipt Date: 20101011
  Transmission Date: 20110411
  Serious: Yes (Hospitalization)
  Sender: FDA-Public Use
  Company Number: IT-ELI_LILLY_AND_COMPANY-IT201010002263

PATIENT
  Sex: Female

DRUGS (1)
  1. PROZAC [Suspect]

REACTIONS (2)
  - HEPATITIS ACUTE [None]
  - MONONUCLEOSIS SYNDROME [None]
